FAERS Safety Report 17657069 (Version 6)
Quarter: 2022Q1

REPORT INFORMATION
  Report Type: Report from Study
  Country: US (occurrence: US)
  Receive Date: 20200410
  Receipt Date: 20220308
  Transmission Date: 20220423
  Serious: Yes (Hospitalization)
  Sender: FDA-Public Use
  Company Number: US-BOEHRINGERINGELHEIM-2020-BI-018617

PATIENT
  Age: 71 Year
  Sex: Male
  Weight: 102 kg

DRUGS (26)
  1. NINTEDANIB [Suspect]
     Active Substance: NINTEDANIB
     Indication: Interstitial lung disease
     Route: 048
     Dates: start: 20190621, end: 20200404
  2. NINTEDANIB [Suspect]
     Active Substance: NINTEDANIB
     Route: 048
     Dates: start: 20200427
  3. NIACIN [Concomitant]
     Active Substance: NIACIN
     Indication: Coronary artery disease
     Dosage: 500MG 3X PER DAY
     Route: 048
  4. PROTONIX [Concomitant]
     Active Substance: PANTOPRAZOLE SODIUM
     Indication: Gastrooesophageal reflux disease
     Route: 048
  5. BENICAR [Concomitant]
     Active Substance: OLMESARTAN MEDOXOMIL
     Indication: Hypertension
     Route: 048
  6. ALLOPURINOL [Concomitant]
     Active Substance: ALLOPURINOL
     Indication: Gout
     Route: 048
  7. Lovasa [Concomitant]
     Indication: Blood triglycerides increased
     Dosage: 1MG 4 PER DAY
     Route: 048
  8. CELEBREX [Concomitant]
     Active Substance: CELECOXIB
     Indication: Osteoarthritis
     Dosage: 200MG 2 PER DAY
     Route: 048
  9. MINERALS\VITAMINS [Concomitant]
     Active Substance: MINERALS\VITAMINS
     Indication: Malnutrition
     Dosage: 1 TABLET PER DAY
     Route: 048
  10. GLUCOSAMINE HYDROCHLORIDE\SODIUM CHONDROITIN SULFATE [Concomitant]
     Active Substance: GLUCOSAMINE HYDROCHLORIDE\SODIUM CHONDROITIN SULFATE
     Indication: Osteoarthritis
     Dosage: 1 PER DAY
     Route: 048
  11. ASPIRIN [Concomitant]
     Active Substance: ASPIRIN
     Indication: Coronary artery disease
     Route: 048
  12. CLOBETASOL PROPIONATE [Concomitant]
     Active Substance: CLOBETASOL PROPIONATE
     Indication: Psoriasis
     Dosage: UNIT DOSE: 0.05%
     Route: 061
  13. OXYGEN [Concomitant]
     Active Substance: OXYGEN
     Indication: Dyspnoea
     Dosage: UNIT DOSE: 10-12 LITERS
     Route: 045
  14. IMIQUIMOD [Concomitant]
     Active Substance: IMIQUIMOD
     Indication: Precancerous skin lesion
     Dosage: UNIT DOSE; 5%
     Route: 061
  15. Fluorouracil topical cream [Concomitant]
     Indication: Psoriasis
     Dosage: UNIT DOSE: 5%
     Route: 061
  16. TYLENOL PM [Concomitant]
     Active Substance: ACETAMINOPHEN\DIPHENHYDRAMINE
     Indication: Insomnia
     Dosage: AT BED TIME
     Route: 048
  17. LASIX [Concomitant]
     Active Substance: FUROSEMIDE
     Indication: Coronary artery disease
     Dosage: 20MG PER DAY
     Route: 048
  18. LASIX [Concomitant]
     Active Substance: FUROSEMIDE
     Indication: Oedema peripheral
     Route: 048
     Dates: start: 20200228
  19. LASIX [Concomitant]
     Active Substance: FUROSEMIDE
     Dosage: 2 PER DAY
     Route: 048
  20. FLUTICASONE [Concomitant]
     Active Substance: FLUTICASONE
     Indication: Rhinitis allergic
     Route: 045
  21. NIZORAL [Concomitant]
     Active Substance: KETOCONAZOLE
     Indication: Psoriasis
     Dosage: UNIT DOSE: 2% AS NEEDED
     Route: 061
  22. ACITRETIN [Concomitant]
     Active Substance: ACITRETIN
     Indication: Psoriasis
     Dosage: 25MG PER WEEK
     Route: 048
  23. ACITRETIN [Concomitant]
     Active Substance: ACITRETIN
     Route: 048
  24. SULFAMETHOXAZOLE\TRIMETHOPRIM [Concomitant]
     Active Substance: SULFAMETHOXAZOLE\TRIMETHOPRIM
     Indication: Precancerous skin lesion
     Route: 048
  25. PREDNISONE [Concomitant]
     Active Substance: PREDNISONE
     Indication: Dyspnoea
     Route: 048
  26. NORCO [Concomitant]
     Active Substance: ACETAMINOPHEN\HYDROCODONE BITARTRATE
     Indication: Squamous cell carcinoma
     Route: 048
     Dates: start: 20200225

REACTIONS (1)
  - Gastrointestinal haemorrhage [Recovered/Resolved]

NARRATIVE: CASE EVENT DATE: 20200404
